FAERS Safety Report 6603254-6 (Version None)
Quarter: 2010Q1

REPORT INFORMATION
  Report Type: 
  Country: None (occurrence: None)
  Receive Date: 20100226
  Receipt Date: 20100118
  Transmission Date: 20100710
  Serious: Yes (Death, Other)
  Sender: FDA-Public Use
  Company Number: US-BAXTER-2009BH006804

PATIENT
  Age: 71 Year
  Sex: Female
  Weight: 63 kg

DRUGS (28)
  1. HEPARIN SODIUM INJECTION [Suspect]
     Indication: THROMBOSIS PROPHYLAXIS
     Route: 065
     Dates: start: 20070717, end: 20070717
  2. HEPARIN SODIUM INJECTION [Suspect]
     Indication: ARTERIOVENOUS FISTULA OPERATION
     Route: 065
     Dates: start: 20070717, end: 20070717
  3. HEPARIN SODIUM INJECTION [Suspect]
     Indication: INTRAVENOUS CATHETER MANAGEMENT
     Route: 065
     Dates: start: 20070717, end: 20070717
  4. HEPARIN SODIUM INJECTION [Suspect]
     Route: 042
     Dates: start: 20071002
  5. HEPARIN SODIUM INJECTION [Suspect]
     Route: 042
     Dates: start: 20071002
  6. HEPARIN SODIUM INJECTION [Suspect]
     Route: 042
     Dates: start: 20071002
  7. HEPARIN SODIUM INJECTION [Suspect]
     Route: 058
     Dates: start: 20071009, end: 20071019
  8. HEPARIN SODIUM INJECTION [Suspect]
     Route: 058
     Dates: start: 20071009, end: 20071019
  9. HEPARIN SODIUM INJECTION [Suspect]
     Route: 058
     Dates: start: 20071009, end: 20071019
  10. HEPARIN SODIUM INJECTION [Suspect]
     Route: 010
     Dates: start: 20070717, end: 20071201
  11. HEPARIN SODIUM INJECTION [Suspect]
     Route: 010
     Dates: start: 20070717, end: 20071201
  12. HEPARIN SODIUM INJECTION [Suspect]
     Route: 010
     Dates: start: 20070717, end: 20071201
  13. GLUCOTROL XL [Concomitant]
     Indication: DRUG USE FOR UNKNOWN INDICATION
     Route: 065
  14. NAMENDA [Concomitant]
     Indication: DRUG USE FOR UNKNOWN INDICATION
     Route: 065
  15. HECTOROL [Concomitant]
     Indication: DRUG USE FOR UNKNOWN INDICATION
     Route: 065
  16. AMLODIPINE [Concomitant]
     Indication: DRUG USE FOR UNKNOWN INDICATION
     Route: 065
  17. DEMADEX [Concomitant]
     Indication: DRUG USE FOR UNKNOWN INDICATION
     Route: 065
  18. CLONIDINE [Concomitant]
     Indication: DRUG USE FOR UNKNOWN INDICATION
     Route: 065
  19. MINITRAN [Concomitant]
     Indication: DRUG USE FOR UNKNOWN INDICATION
     Route: 061
  20. PRILOSEC [Concomitant]
     Indication: DRUG USE FOR UNKNOWN INDICATION
     Route: 065
  21. RENAGEL [Concomitant]
     Indication: DRUG USE FOR UNKNOWN INDICATION
     Route: 065
  22. PENTOXIFYLLINE [Concomitant]
     Indication: DRUG USE FOR UNKNOWN INDICATION
     Route: 065
  23. ZETIA [Concomitant]
     Indication: DRUG USE FOR UNKNOWN INDICATION
     Route: 065
  24. LABETALOL HCL [Concomitant]
     Indication: DRUG USE FOR UNKNOWN INDICATION
     Route: 065
  25. ASPIRIN [Concomitant]
     Indication: DRUG USE FOR UNKNOWN INDICATION
     Route: 065
  26. ARICEPT [Concomitant]
     Indication: DRUG USE FOR UNKNOWN INDICATION
     Route: 065
  27. CELEXA [Concomitant]
     Indication: DRUG USE FOR UNKNOWN INDICATION
     Route: 065
  28. POTASSIUM [Concomitant]
     Indication: DRUG USE FOR UNKNOWN INDICATION
     Route: 065

REACTIONS (12)
  - ABDOMINAL ADHESIONS [None]
  - BACTERIAL SEPSIS [None]
  - CLOSTRIDIAL INFECTION [None]
  - ENTEROCOCCAL INFECTION [None]
  - HYPOTENSION [None]
  - INTESTINAL OBSTRUCTION [None]
  - LUNG INFILTRATION [None]
  - PLEURAL EFFUSION [None]
  - PNEUMONIA ASPIRATION [None]
  - RESPIRATORY FAILURE [None]
  - SEPSIS [None]
  - VOMITING [None]
